FAERS Safety Report 9847875 (Version 2)
Quarter: 2014Q2

REPORT INFORMATION
  Report Type: Spontaneous
  Country: GB (occurrence: GB)
  Receive Date: 20140128
  Receipt Date: 20140429
  Transmission Date: 20141212
  Serious: Yes (Life-Threatening, Hospitalization, Disabling, Other)
  Sender: FDA-Public Use
  Company Number: GB-ACCORD-021434

PATIENT
  Age: 24 Year
  Sex: Male
  Weight: 107.95 kg

DRUGS (1)
  1. QUETIAPINE [Suspect]
     Dosage: MASSIVE OVERDOSE OF QUETIAPINE (750 MG) DUE TO MEDICATION ERROR
     Route: 048

REACTIONS (10)
  - Type 2 diabetes mellitus [Not Recovered/Not Resolved]
  - Weight increased [Not Recovered/Not Resolved]
  - Metabolic syndrome [Not Recovered/Not Resolved]
  - Sleep apnoea syndrome [Not Recovered/Not Resolved]
  - Medication error [Unknown]
  - Pallor [Unknown]
  - Glassy eyes [Unknown]
  - Dyspnoea [Unknown]
  - Overdose [Unknown]
  - Tardive dyskinesia [Not Recovered/Not Resolved]
